FAERS Safety Report 6289636-3 (Version None)
Quarter: 2009Q3

REPORT INFORMATION
  Report Type: 
  Country: None (occurrence: None)
  Receive Date: 20090730
  Receipt Date: 20001214
  Transmission Date: 20100115
  Serious: No
  Sender: FDA-Public Use
  Company Number: 2000COU1694

PATIENT
  Sex: Female

DRUGS (1)
  1. COUMADIN [Suspect]
     Indication: ADVERSE EVENT
     Dosage: UNK UNK
     Route: 048

REACTIONS (2)
  - CONGENITAL ANOMALY [None]
  - PREGNANCY [None]
